FAERS Safety Report 9474608 (Version 2)
Quarter: 2013Q3

REPORT INFORMATION
  Report Type: Spontaneous
  Country: HR (occurrence: HR)
  Receive Date: 20130823
  Receipt Date: 20130829
  Transmission Date: 20140515
  Serious: Yes (Other)
  Sender: FDA-Public Use
  Company Number: HR-VIIV HEALTHCARE LIMITED-B0917289A

PATIENT
  Age: 54 Year
  Sex: Male

DRUGS (3)
  1. ABACAVIR [Suspect]
     Indication: HIV INFECTION
     Route: 065
     Dates: start: 200705, end: 201002
  2. LAMIVUDINE-HIV [Concomitant]
     Indication: HIV INFECTION
     Dates: start: 200201
  3. EFAVIRENZ [Concomitant]
     Indication: HIV INFECTION
     Dates: start: 200211

REACTIONS (6)
  - Congestive cardiomyopathy [Recovered/Resolved]
  - Cardiac failure [Recovered/Resolved]
  - Ejection fraction decreased [Unknown]
  - Dyspnoea [Unknown]
  - Cough [Unknown]
  - Chest X-ray abnormal [Unknown]
